FAERS Safety Report 15845922 (Version 1)
Quarter: 2019Q1

REPORT INFORMATION
  Report Type: Spontaneous
  Country: US (occurrence: US)
  Receive Date: 20190120
  Receipt Date: 20190120
  Transmission Date: 20190417
  Serious: No
  Sender: FDA-Public Use
  Company Number: US-DEXPHARM-20180404

PATIENT
  Age: 38 Year
  Sex: Female
  Weight: 63.49 kg

DRUGS (1)
  1. OMEPRAZOLE DELAYED RELEASE TABLETS 20 MG [Suspect]
     Active Substance: OMEPRAZOLE
     Indication: WRONG PRODUCT ADMINISTERED
     Dosage: 60 MG, SINGLE
     Route: 048
     Dates: start: 20180510, end: 20180510

REACTIONS (2)
  - Wrong product administered [Recovered/Resolved]
  - Overdose [Recovered/Resolved]

NARRATIVE: CASE EVENT DATE: 20180510
